FAERS Safety Report 25467404 (Version 3)
Quarter: 2025Q3

REPORT INFORMATION
  Report Type: Spontaneous
  Country: EU (occurrence: EU)
  Receive Date: 20250623
  Receipt Date: 20250819
  Transmission Date: 20251021
  Serious: Yes (Hospitalization, Other)
  Sender: NOVARTIS
  Company Number: EU-002147023-NVSC2025PL096127

PATIENT
  Age: 34 Year
  Sex: Male

DRUGS (14)
  1. TASIGNA [Suspect]
     Active Substance: NILOTINIB
     Indication: Chronic myeloid leukaemia
     Dosage: 800 MG, QD (400 MG IN THE MORNING AND 400 MG IN THE EVENING)
     Route: 048
     Dates: start: 20230706
  2. ACYCLOVIR [Concomitant]
     Active Substance: ACYCLOVIR
     Indication: Product used for unknown indication
     Dosage: 400 MG, BID (1-0-1)
     Route: 065
     Dates: start: 20221011, end: 20240606
  3. Esseliv forte [Concomitant]
     Indication: Product used for unknown indication
     Dosage: UNK, QD  (1-0-0)
     Route: 065
     Dates: start: 20230831, end: 20230928
  4. Esseliv forte [Concomitant]
     Dosage: UNK, BID (1-0-1)
     Route: 065
     Dates: start: 20230928, end: 20231026
  5. Heparegen [Concomitant]
     Indication: Product used for unknown indication
     Dosage: 100 MG, TID (1-1-1)
     Route: 065
     Dates: start: 20231026, end: 20240314
  6. Heparegen [Concomitant]
     Dosage: 100 MG, TID  (1-1-1)
     Route: 065
     Dates: start: 20240828, end: 20250424
  7. URSODIOL [Concomitant]
     Active Substance: URSODIOL
     Indication: Product used for unknown indication
     Dosage: 250 MG, QD (1-0-0)
     Route: 065
     Dates: start: 20231221, end: 20250424
  8. VITAMIN D3 [Concomitant]
     Active Substance: CHOLECALCIFEROL
     Indication: Product used for unknown indication
     Route: 065
  9. Timohep [Concomitant]
     Indication: Product used for unknown indication
     Route: 065
  10. Timohep [Concomitant]
     Route: 065
     Dates: start: 20250701, end: 20250707
  11. Timohep [Concomitant]
     Dosage: 100 MG, BID (1-0-1)
     Route: 065
     Dates: start: 20250708, end: 20250721
  12. Timohep [Concomitant]
     Dosage: 100 MG, QD (1-0-0)
     Route: 065
     Dates: start: 20250722, end: 20250801
  13. Esseliv duo [Concomitant]
     Indication: Product used for unknown indication
     Route: 065
  14. Esseliv duo [Concomitant]
     Dosage: UNK, BID  (1-0-1)
     Route: 065
     Dates: start: 20240314, end: 20250630

REACTIONS (18)
  - Epilepsy [Recovered/Resolved]
  - Epilepsy [Recovered/Resolved]
  - Loss of consciousness [Recovered/Resolved]
  - Disorientation [Recovered/Resolved]
  - Blood thyroid stimulating hormone decreased [Recovered/Resolved]
  - Rash papular [Recovered/Resolved]
  - Hypotension [Recovered/Resolved]
  - Hepatic enzyme increased [Recovering/Resolving]
  - Blood bilirubin increased [Not Recovered/Not Resolved]
  - Weight decreased [Not Recovered/Not Resolved]
  - Rash [Recovered/Resolved]
  - Alanine aminotransferase increased [Recovered/Resolved]
  - Alanine aminotransferase increased [Unknown]
  - Aspartate aminotransferase increased [Recovered/Resolved]
  - Blood bilirubin increased [Recovered/Resolved]
  - Blood bilirubin increased [Unknown]
  - Blood glucose increased [Recovered/Resolved]
  - Glucose tolerance impaired [Recovered/Resolved]

NARRATIVE: CASE EVENT DATE: 20230803
